FAERS Safety Report 9290657 (Version 2)
Quarter: 2013Q2

REPORT INFORMATION
  Report Type: Report from Study
  Country: NO (occurrence: NO)
  Receive Date: 20130515
  Receipt Date: 20130603
  Transmission Date: 20140414
  Serious: Yes (Other)
  Sender: FDA-Public Use
  Company Number: NO-ROCHE-1223861

PATIENT
  Age: 42 Year
  Sex: Female
  Weight: 82 kg

DRUGS (6)
  1. TRASTUZUMAB EMTANSINE [Suspect]
     Indication: BREAST CANCER METASTATIC
     Route: 042
     Dates: start: 20130227
  2. MEDROL [Concomitant]
     Indication: NAUSEA
     Route: 048
     Dates: start: 20121212
  3. SOMAC (NORWAY) [Concomitant]
     Route: 048
     Dates: start: 20121025
  4. GABAPENTIN [Concomitant]
     Indication: ANALGESIC THERAPY
     Route: 048
     Dates: start: 20121025
  5. FENTANYL [Concomitant]
     Indication: ANALGESIC THERAPY
     Route: 062
     Dates: start: 20130325
  6. OXYCODON [Concomitant]
     Indication: ANALGESIC THERAPY
     Route: 048
     Dates: start: 20121126, end: 20130325

REACTIONS (1)
  - Pulmonary embolism [Recovering/Resolving]
